FAERS Safety Report 9403416 (Version 1)
Quarter: 2013Q3

REPORT INFORMATION
  Report Type: Spontaneous
  Country: CN (occurrence: CN)
  Receive Date: 20130716
  Receipt Date: 20130716
  Transmission Date: 20140515
  Serious: Yes (Other)
  Sender: FDA-Public Use
  Company Number: CN-BAXTER-2013BAX026677

PATIENT
  Age: 85 Year
  Sex: Female
  Weight: 43 kg

DRUGS (1)
  1. 5% GLUCOSE INJECTION [Suspect]
     Indication: VITAMIN SUPPLEMENTATION
     Route: 041
     Dates: start: 20120920, end: 20120928

REACTIONS (3)
  - Chills [Recovered/Resolved]
  - Pyrexia [Recovered/Resolved]
  - Dyspnoea [Recovered/Resolved]
